FAERS Safety Report 19594150 (Version 2)
Quarter: 2021Q3

REPORT INFORMATION
  Report Type: Report from Study
  Country: ES (occurrence: ES)
  Receive Date: 20210722
  Receipt Date: 20210729
  Transmission Date: 20211014
  Serious: Yes (Hospitalization)
  Sender: FDA-Public Use
  Company Number: ES-ROCHE-2873811

PATIENT
  Age: 85 Year
  Sex: Male
  Weight: 66.5 kg

DRUGS (3)
  1. ATEZOLIZUMAB. [Suspect]
     Active Substance: ATEZOLIZUMAB
     Indication: TRANSITIONAL CELL CARCINOMA
     Dosage: EVERY 21 DAYS?LAST CYCLE OF ATEZOLIZUMAB : 10/JUL/2021
     Route: 041
     Dates: start: 20210704
  2. CISPLATIN. [Suspect]
     Active Substance: CISPLATIN
     Indication: TRANSITIONAL CELL CARCINOMA
     Dosage: 70 MG/M2 ON SPLIT?DOSE SCHEDULE OF 35 MG/M2 ON DAY 1 (D1) AND 35 MG/M2 ON DAY 8 (D8) FOR UP TO 6 CYC
     Route: 042
     Dates: start: 20210704
  3. GEMCITABINE. [Suspect]
     Active Substance: GEMCITABINE
     Indication: TRANSITIONAL CELL CARCINOMA
     Dosage: D1 AND ON D8 OF EACH 21?DAY CYCLE?LAST CYCLE OF GEMCITABINE (1700 MG): 10/JUL/2021
     Route: 042
     Dates: start: 20210704

REACTIONS (1)
  - Acute kidney injury [Recovered/Resolved with Sequelae]

NARRATIVE: CASE EVENT DATE: 20210708
